FAERS Safety Report 4597759-X (Version None)
Quarter: 2005Q1

REPORT INFORMATION
  Report Type: 
  Country: None (occurrence: None)
  Receive Date: 20050125
  Receipt Date: 20041209
  Transmission Date: 20050727
  Serious: No
  Sender: FDA-Public Use
  Company Number: USA040876744

PATIENT
  Age: 57 Year
  Sex: Female
  Weight: 45 kg

DRUGS (1)
  1. FORTEO [Suspect]
     Indication: OSTEOPOROSIS
     Dosage: 2O UG DAY
     Dates: start: 20040823

REACTIONS (6)
  - CONTUSION [None]
  - ERYTHEMA [None]
  - INJECTION SITE HAEMORRHAGE [None]
  - INJURY [None]
  - PAIN [None]
  - SWELLING [None]
